FAERS Safety Report 10445324 (Version 1)
Quarter: 2014Q3

REPORT INFORMATION
  Report Type: Spontaneous
  Country: CA (occurrence: CA)
  Receive Date: 20140910
  Receipt Date: 20140910
  Transmission Date: 20150326
  Serious: Yes (Other)
  Sender: FDA-Public Use
  Company Number: CA-GLAXOSMITHKLINE-A1088195A

PATIENT
  Age: 37 Year
  Sex: Male
  Weight: 93.2 kg

DRUGS (1)
  1. ADVAIR HFA [Suspect]
     Active Substance: FLUTICASONE PROPIONATE\SALMETEROL XINAFOATE
     Dosage: 125MCG TWICE PER DAY
     Route: 048

REACTIONS (4)
  - Muscle injury [Unknown]
  - Musculoskeletal pain [Unknown]
  - Syncope [Unknown]
  - Convulsion [Unknown]
